FAERS Safety Report 5542619-0 (Version None)
Quarter: 2007Q4

REPORT INFORMATION
  Report Type: 
  Country: None (occurrence: None)
  Receive Date: 20071206
  Receipt Date: 20071206
  Transmission Date: 20080405
  Serious: No
  Sender: FDA-Public Use
  Company Number: None

PATIENT
  Sex: Male
  Weight: 63.5036 kg

DRUGS (1)
  1. AZMACORT [Suspect]
     Indication: ASTHMA
     Dosage: 4 PUFFS TWICE A DAY PO
     Route: 048
     Dates: start: 20071117, end: 20071205

REACTIONS (1)
  - PHARMACEUTICAL PRODUCT COMPLAINT [None]
